FAERS Safety Report 22760088 (Version 3)
Quarter: 2024Q4

REPORT INFORMATION
  Report Type: Spontaneous
  Country: US (occurrence: US)
  Receive Date: 20230728
  Receipt Date: 20241227
  Transmission Date: 20250115
  Serious: No
  Sender: PFIZER
  Company Number: US-PFIZER INC-PV202300129086

PATIENT
  Age: 75 Year
  Sex: Female
  Weight: 55.329 kg

DRUGS (1)
  1. XELJANZ XR [Suspect]
     Active Substance: TOFACITINIB CITRATE
     Indication: Bone disorder
     Dosage: 1 TABLET PER DAY

REACTIONS (1)
  - Pain [Unknown]
